FAERS Safety Report 25835018 (Version 1)
Quarter: 2025Q3

REPORT INFORMATION
  Report Type: Other
  Country: GB (occurrence: GB)
  Receive Date: 20250923
  Receipt Date: 20250923
  Transmission Date: 20251021
  Serious: Yes (Disabling, Other)
  Sender: GLENMARK
  Company Number: GB-MHRA-TPP37456302C11084385YC1756991116595

PATIENT
  Age: 82 Year
  Sex: Female
  Weight: 52 kg

DRUGS (12)
  1. DAPAGLIFLOZIN [Suspect]
     Active Substance: DAPAGLIFLOZIN
     Indication: Product used for unknown indication
     Route: 065
     Dates: start: 20250826, end: 20250901
  2. BIMATOPROST [Concomitant]
     Active Substance: BIMATOPROST
     Indication: Ill-defined disorder
     Dosage: DROPS (UNSPECIFIED) 1 DOSAGE FORM, OD (PUT ONE DROP INTO BOTH EYES ONCE A DAY )
     Route: 065
     Dates: start: 20241112
  3. BISOPROLOL [Concomitant]
     Active Substance: BISOPROLOL
     Indication: Ill-defined disorder
     Dosage: 1 DOSAGE FORM, BID (TAKE ONE TABLET TWICE A DAY
     Route: 065
     Dates: start: 20241112
  4. CODEINE PHOSPHATE [Concomitant]
     Active Substance: CODEINE PHOSPHATE
     Indication: Ill-defined disorder
     Dosage: 2 DOSAGE FORM, BID (TAKE TWO TABLETS TWICE A DAY WHEN REQUIRED FOR ...
     Route: 065
     Dates: start: 20241112
  5. DORZOLAMIDE [Concomitant]
     Active Substance: DORZOLAMIDE
     Indication: Ill-defined disorder
     Dosage: DROPS (UNSPECIFIED) 1 DOSAGE FORM, BID (PUT ONE DROP INTO BOTH EYES TWICE A DAY  )
     Route: 065
     Dates: start: 20241112
  6. MINERAL OIL\PARAFFIN [Concomitant]
     Active Substance: MINERAL OIL\PARAFFIN
     Indication: Ill-defined disorder
     Dosage: UNK UNK, BID (APPLY TO THE AFFECTED AREA(S) TWICE A DAY OR IN)
     Route: 065
     Dates: start: 20241112
  7. GLIMEPIRIDE [Concomitant]
     Active Substance: GLIMEPIRIDE
     Indication: Ill-defined disorder
     Dosage: 1 DOSAGE FORM, OD (TAKE ONE TABLET ONCE A DAY
     Route: 065
     Dates: start: 20241112
  8. LANSOPRAZOLE [Concomitant]
     Active Substance: LANSOPRAZOLE
     Indication: Ill-defined disorder
     Route: 065
     Dates: start: 20241112
  9. ACETAMINOPHEN [Concomitant]
     Active Substance: ACETAMINOPHEN
     Indication: Ill-defined disorder
     Dosage: 1 DOSAGE FORM, QID (TAKE ONE TABLET FOUR TIMES A DAY)
     Route: 065
     Dates: start: 20241112
  10. Adcal [Concomitant]
     Indication: Ill-defined disorder
     Dosage: UNK UNK, BID (TAKE TWO CAPLETS TWICE A DAY)
     Route: 065
     Dates: start: 20250127
  11. METFORMIN [Concomitant]
     Active Substance: METFORMIN HYDROCHLORIDE
     Indication: Ill-defined disorder
     Dosage: 1 DOSAGE FORM, BID (TAKE ONE TABLET TWICE A DAY )
     Route: 065
     Dates: start: 20250130
  12. Microlet [Concomitant]
     Indication: Ill-defined disorder
     Route: 065
     Dates: start: 20250820

REACTIONS (3)
  - Hallucination [Recovered/Resolved]
  - Confusional state [Recovered/Resolved]
  - Abnormal dreams [Recovered/Resolved]
